FAERS Safety Report 25450981 (Version 1)
Quarter: 2025Q2

REPORT INFORMATION
  Report Type: Spontaneous
  Country: US (occurrence: US)
  Receive Date: 20250618
  Receipt Date: 20250618
  Transmission Date: 20250716
  Serious: No
  Sender: PFIZER
  Company Number: US-PFIZER INC-202500123708

PATIENT
  Age: 55 Year
  Sex: Female

DRUGS (1)
  1. LORBRENA [Suspect]
     Active Substance: LORLATINIB

REACTIONS (4)
  - Weight increased [Unknown]
  - Abdominal distension [Unknown]
  - Joint swelling [Unknown]
  - Hypoaesthesia [Unknown]
